FAERS Safety Report 24444723 (Version 2)
Quarter: 2024Q4

REPORT INFORMATION
  Report Type: Report from Study
  Country: US (occurrence: US)
  Receive Date: 20241016
  Receipt Date: 20241017
  Transmission Date: 20250115
  Serious: No
  Sender: ROCHE
  Company Number: US-ROCHE-3009641

PATIENT
  Age: 44 Year
  Sex: Female

DRUGS (20)
  1. RITUXAN [Suspect]
     Active Substance: RITUXIMAB
     Indication: Systemic lupus erythematosus
     Dosage: 1000 MG FOR 2 DOSES, THEN EVERY 6 MONTHS, VIAL, ?STRENGHT: 10 MG/ML, 100M MG ONE DOSE?DATE OF TREATM
     Route: 042
  2. RITUXAN [Suspect]
     Active Substance: RITUXIMAB
     Indication: Interstitial lung disease
  3. TYLENOL [Concomitant]
     Active Substance: ACETAMINOPHEN
     Dosage: 650 MG TABLET EXTENDED RELEASE
  4. AZATHIOPRINE [Concomitant]
     Active Substance: AZATHIOPRINE
     Dosage: 50 MG TABLET
  5. CLOBETASOL [Concomitant]
     Active Substance: CLOBETASOL
     Dosage: 0.05 % TOPPICAL SOLUTION
  6. DESONIDE [Concomitant]
     Active Substance: DESONIDE
     Dosage: 0.05 % CREAM
  7. VOLTAREN [Concomitant]
     Active Substance: DICLOFENAC SODIUM
     Dosage: 1 % TOPICAL GEL
  8. DOCUSATE SODIUM [Concomitant]
     Active Substance: DOCUSATE SODIUM
     Dosage: 100 MG CAPSULE
  9. ERGOCALCIFEROL [Concomitant]
     Active Substance: ERGOCALCIFEROL
     Dosage: 1250 MCG CAPSULE
  10. HYDROXYCHLOROQUINE [Concomitant]
     Active Substance: HYDROXYCHLOROQUINE
     Dosage: 200 MG TABLET
  11. KETOCONAZOLE [Concomitant]
     Active Substance: KETOCONAZOLE
  12. MENTHOL [Concomitant]
     Active Substance: MENTHOL
  13. METRONIDAZOLE [Concomitant]
     Active Substance: METRONIDAZOLE
  14. NAPROXEN [Concomitant]
     Active Substance: NAPROXEN
  15. PROTONIX [Concomitant]
     Active Substance: PANTOPRAZOLE SODIUM
  16. PREDNISONE [Concomitant]
     Active Substance: PREDNISONE
  17. SIMVASTATIN [Concomitant]
     Active Substance: SIMVASTATIN
  18. TACROLIMUS [Concomitant]
     Active Substance: TACROLIMUS
  19. TERBINAFINE [Concomitant]
     Active Substance: TERBINAFINE\TERBINAFINE HYDROCHLORIDE
  20. TERBINAFINE HYDROCHLORIDE [Concomitant]
     Active Substance: TERBINAFINE HYDROCHLORIDE

REACTIONS (2)
  - Off label use [Unknown]
  - No adverse event [Unknown]
